FAERS Safety Report 11076831 (Version 1)
Quarter: 2015Q2

REPORT INFORMATION
  Report Type: Spontaneous
  Country: US (occurrence: US)
  Receive Date: 20150429
  Receipt Date: 20150429
  Transmission Date: 20150821
  Serious: Yes (Other)
  Sender: FDA-Public Use
  Company Number: US-BAXTER-2015BAX022146

PATIENT
  Sex: Female

DRUGS (4)
  1. DOBUTAMINE HYDROCHLORIDE IN DEXTROSE [Suspect]
     Active Substance: DEXTROSE MONOHYDRATE\DEXTROSE MONOHYDRATE\DOBUTAMINE HYDROCHLORIDE\DOBUTAMINE HYDROCHLORIDE
     Indication: VASODILATATION
     Route: 042
  2. DOPAMINE HYDROCHLORIDE AND DEXTROSE [Suspect]
     Active Substance: DOPAMINE HYDROCHLORIDE
     Indication: VASOCONSTRICTION
     Route: 042
  3. MILRINONE LACTATE IN 5% DEXTROSE INJECTION [Suspect]
     Active Substance: MILRINONE LACTATE
     Indication: VENTRICULAR HYPOKINESIA
     Route: 042
  4. VASOPRESSIN. [Suspect]
     Active Substance: VASOPRESSIN
     Indication: VENTRICULAR HYPOKINESIA
     Route: 065

REACTIONS (4)
  - Ventricular dysfunction [Recovered/Resolved]
  - Exposure during pregnancy [Recovered/Resolved]
  - Condition aggravated [Recovered/Resolved]
  - Ejection fraction decreased [Recovered/Resolved]
